FAERS Safety Report 4638027-7 (Version None)
Quarter: 2005Q2

REPORT INFORMATION
  Report Type: 
  Country: None (occurrence: None)
  Receive Date: 20050415
  Receipt Date: 20050407
  Transmission Date: 20051028
  Serious: Yes (Other)
  Sender: FDA-Public Use
  Company Number: 2005056518

PATIENT
  Age: 33 Year
  Sex: Female
  Weight: 113.3993 kg

DRUGS (8)
  1. LIPITOR [Suspect]
     Indication: BLOOD CHOLESTEROL INCREASED
     Dosage: 10 MG (10 MG, 1 IN 1 D), ORAL
     Route: 048
     Dates: start: 20000101, end: 20050202
  2. NICOTINIC ACID [Concomitant]
  3. LOSARTAN POTASSIUM [Concomitant]
  4. LEVOTHYROXINE SODIUM [Concomitant]
  5. ATENOLOL [Concomitant]
  6. FLUOXETINE HCL [Concomitant]
  7. TRIOBE (CYANOCOBALAMIN, FOLIC ACID, PYRIDOXINE) [Concomitant]
  8. ASPIRIN [Concomitant]

REACTIONS (2)
  - CORONARY ARTERY SURGERY [None]
  - HEPATIC ENZYME INCREASED [None]
